FAERS Safety Report 9147335 (Version 1)
Quarter: 2013Q1

REPORT INFORMATION
  Report Type: Spontaneous
  Country: US (occurrence: US)
  Receive Date: 20130307
  Receipt Date: 20130307
  Transmission Date: 20140127
  Serious: Yes (Hospitalization)
  Sender: FDA-Public Use
  Company Number: US-GLAXOSMITHKLINE-A1014024A

PATIENT
  Age: 73 Year
  Sex: Female

DRUGS (14)
  1. ADVAIR [Suspect]
     Indication: ASTHMA
     Dosage: 1PUFF TWICE PER DAY
     Route: 055
     Dates: start: 2006
  2. ALBUTEROL NEBULIZER [Concomitant]
  3. ASPIRIN LOW DOSE [Concomitant]
  4. DALIRESP [Concomitant]
  5. APATEF [Concomitant]
  6. GLIPIZIDE [Concomitant]
  7. METFORMIN [Concomitant]
  8. GABAPENTIN [Concomitant]
  9. SIMVASTATIN [Concomitant]
  10. FLUTICASONE NASAL SPRAY [Concomitant]
  11. IPRATROPIUM [Concomitant]
  12. OXYCODONE [Concomitant]
  13. VICODIN [Concomitant]
  14. PREDNISONE [Concomitant]
     Indication: STATUS ASTHMATICUS

REACTIONS (3)
  - Pneumonia [Unknown]
  - Asthma [Not Recovered/Not Resolved]
  - Drug ineffective [Unknown]
